FAERS Safety Report 21232318 (Version 1)
Quarter: 2022Q3

REPORT INFORMATION
  Report Type: Spontaneous
  Country: US (occurrence: None)
  Receive Date: 20220819
  Receipt Date: 20220819
  Transmission Date: 20221027
  Serious: No
  Sender: FDA-Public Use
  Company Number: None

PATIENT
  Age: 43 Year
  Sex: Male
  Weight: 80.1 kg

DRUGS (1)
  1. DEXTROAMPHET SACCHARAT, AMPHET ASPARTATE, DEXTROAMPHET SULFATE AND AMP [Suspect]
     Active Substance: AMPHETAMINE ASPARTATE\AMPHETAMINE SULFATE\DEXTROAMPHETAMINE SACCHARATE\DEXTROAMPHETAMINE SULFATE
     Indication: Attention deficit hyperactivity disorder
     Dosage: OTHER QUANTITY : 30 CAPSULE(S);?FREQUENCY : DAILY;?
     Route: 048
     Dates: start: 20220816, end: 20220818

REACTIONS (10)
  - Product substitution issue [None]
  - Fatigue [None]
  - Confusional state [None]
  - Disturbance in attention [None]
  - Headache [None]
  - Heart rate increased [None]
  - Irritability [None]
  - Depression [None]
  - Anxiety [None]
  - Hyperhidrosis [None]

NARRATIVE: CASE EVENT DATE: 20220818
